FAERS Safety Report 19440807 (Version 2)
Quarter: 2021Q3

REPORT INFORMATION
  Report Type: Spontaneous
  Country: DE (occurrence: DE)
  Receive Date: 20210621
  Receipt Date: 20210705
  Transmission Date: 20211014
  Serious: No
  Sender: FDA-Public Use
  Company Number: DE-009507513-2106DEU005043

PATIENT
  Age: 83 Year
  Sex: Male

DRUGS (3)
  1. DORZOLAMIDE HYDROCHLORIDE. [Suspect]
     Active Substance: DORZOLAMIDE HYDROCHLORIDE
     Indication: GLAUCOMA
     Dosage: 1 DROP PER EYE, IN THE MORNING AND EVENING (2 GTT, 2 IN 1 D)
     Route: 047
     Dates: start: 202105
  2. BRIMO VISION [Concomitant]
     Dosage: UNK
     Route: 047
  3. GANFORT [Concomitant]
     Active Substance: BIMATOPROST\TIMOLOL
     Dosage: UNK
     Route: 047

REACTIONS (4)
  - Off label use [Unknown]
  - Prescribed underdose [Unknown]
  - Product use complaint [Unknown]
  - Multiple use of single-use product [Unknown]

NARRATIVE: CASE EVENT DATE: 202105
